FAERS Safety Report 4974739-3 (Version None)
Quarter: 2006Q2

REPORT INFORMATION
  Report Type: 
  Country: None (occurrence: None)
  Receive Date: 20060417
  Receipt Date: 20051214
  Transmission Date: 20061013
  Serious: Yes (Hospitalization)
  Sender: FDA-Public Use
  Company Number: US-MERCK-0512USA02350

PATIENT
  Age: 56 Year
  Sex: Male
  Weight: 114 kg

DRUGS (9)
  1. VIOXX [Suspect]
     Indication: OSTEOARTHRITIS
     Route: 048
     Dates: start: 20010801, end: 20040901
  2. ASPIRIN [Concomitant]
     Route: 065
     Dates: start: 20000101
  3. IBUPROFEN [Concomitant]
     Route: 065
     Dates: start: 20000101
  4. ACETAMINOPHEN AND PROPOXYPHENE HYDROCHLORIDE [Concomitant]
     Route: 065
     Dates: start: 20000901, end: 20021201
  5. HYDROCODONE BITARTRATE [Concomitant]
     Route: 065
     Dates: start: 20021119, end: 20031201
  6. OXYCODONE [Concomitant]
     Route: 065
     Dates: start: 20020404
  7. LISINOPRIL [Concomitant]
     Route: 065
     Dates: start: 20020905
  8. TYLENOL (CAPLET) [Concomitant]
     Route: 065
     Dates: end: 20050901
  9. BEXTRA [Concomitant]
     Route: 065
     Dates: start: 20021101

REACTIONS (6)
  - ARTHROPATHY [None]
  - BLOOD CHOLESTEROL INCREASED [None]
  - DEPRESSION [None]
  - DYSPEPSIA [None]
  - GASTROINTESTINAL DISORDER [None]
  - MYOCARDIAL INFARCTION [None]
